FAERS Safety Report 5294564-6 (Version None)
Quarter: 2007Q2

REPORT INFORMATION
  Report Type: 
  Country: None (occurrence: None)
  Receive Date: 20070409
  Receipt Date: 20070409
  Transmission Date: 20071010
  Serious: Yes (Hospitalization)
  Sender: FDA-Public Use
  Company Number: None

PATIENT
  Age: 19 Year
  Sex: Male
  Weight: 84.369 kg

DRUGS (2)
  1. DEXEDRINE [Suspect]
     Indication: ATTENTION DEFICIT/HYPERACTIVITY DISORDER
     Dosage: 10MG ONCE DAILY PO
     Route: 048
     Dates: start: 19990101, end: 19990710
  2. DEXDRINE [Concomitant]

REACTIONS (1)
  - JOINT DISLOCATION [None]
